FAERS Safety Report 23644458 (Version 1)
Quarter: 2024Q1

REPORT INFORMATION
  Report Type: Report from Study
  Country: NL (occurrence: NL)
  Receive Date: 20240318
  Receipt Date: 20240318
  Transmission Date: 20240410
  Serious: Yes (Death, Hospitalization, Other)
  Sender: FDA-Public Use
  Company Number: NL-BAYER-2023A174819

PATIENT
  Age: 72 Year
  Sex: Female

DRUGS (3)
  1. ADEMPAS [Suspect]
     Active Substance: RIOCIGUAT
     Indication: Pulmonary hypertension
     Dosage: 1 MG, TID
     Route: 048
     Dates: start: 20201003, end: 20231109
  2. ADEMPAS [Suspect]
     Active Substance: RIOCIGUAT
     Indication: Pulmonary arterial hypertension
     Dosage: UNK, TID
     Dates: start: 20231213
  3. ADEMPAS [Suspect]
     Active Substance: RIOCIGUAT
     Indication: Pulmonary hypertension
     Dosage: 1 MG
     Route: 048
     Dates: start: 20200930, end: 20240229

REACTIONS (5)
  - Metabolic acidosis [None]
  - Hypotension [Recovering/Resolving]
  - Pneumonia [None]
  - Blood pressure decreased [None]
  - Death [Fatal]

NARRATIVE: CASE EVENT DATE: 20231109
